FAERS Safety Report 5822991-4 (Version None)
Quarter: 2008Q3

REPORT INFORMATION
  Report Type: 
  Country: None (occurrence: None)
  Receive Date: 20080724
  Receipt Date: 20080724
  Transmission Date: 20090109
  Serious: Yes (Hospitalization)
  Sender: FDA-Public Use
  Company Number: None

PATIENT
  Sex: Female
  Weight: 96.1 kg

DRUGS (4)
  1. INSULIN ASPART 70/30 [Suspect]
     Indication: TYPE 1 DIABETES MELLITUS
     Dosage: 20 UNITS DAILY SQ
     Route: 058
     Dates: start: 20080720, end: 20080722
  2. INSULIN ASPART [Suspect]
     Dosage: TID WITH MEALS AND BEDTIME SQ
     Route: 058
  3. PREDNISONE TABLET [Concomitant]
  4. LISINOPRIL [Concomitant]

REACTIONS (3)
  - BLOOD GLUCOSE DECREASED [None]
  - DYSPNOEA [None]
  - WHEEZING [None]
